FAERS Safety Report 24529752 (Version 1)
Quarter: 2024Q4

REPORT INFORMATION
  Report Type: Spontaneous
  Country: US (occurrence: US)
  Receive Date: 20241021
  Receipt Date: 20241021
  Transmission Date: 20250115
  Serious: No
  Sender: TORRENT PHARMA INC.
  Company Number: US-TORRENT-00013804

PATIENT
  Age: 51 Year
  Sex: Female

DRUGS (1)
  1. DICHLORPHENAMIDE [Suspect]
     Active Substance: DICHLORPHENAMIDE
     Indication: Paralysis
     Dosage: 2X/DAY, FOR 2 WEEKS EACH TIME
     Route: 048

REACTIONS (3)
  - Abdominal discomfort [Unknown]
  - Paraesthesia [Unknown]
  - Brain fog [Unknown]
